FAERS Safety Report 18723901 (Version 2)
Quarter: 2021Q1

REPORT INFORMATION
  Report Type: Spontaneous
  Country: US (occurrence: US)
  Receive Date: 20210111
  Receipt Date: 20210112
  Transmission Date: 20210419
  Serious: Yes (Other)
  Sender: FDA-Public Use
  Company Number: US-GLAXOSMITHKLINE-US2020GSK259494

PATIENT
  Age: 59 Year
  Sex: Male

DRUGS (5)
  1. TUMS [Suspect]
     Active Substance: CALCIUM CARBONATE
     Dosage: 500 MG DAILY
     Route: 048
  2. ZANTAC [Suspect]
     Active Substance: RANITIDINE HYDROCHLORIDE
     Indication: GASTROOESOPHAGEAL REFLUX DISEASE
     Dosage: UNK
  3. VITAMIN D3 [Suspect]
     Active Substance: CHOLECALCIFEROL
     Indication: OSTEOPENIA
     Dosage: 400 IU, BID
     Route: 048
  4. TESTOSTERONE. [Concomitant]
     Active Substance: TESTOSTERONE
     Indication: EMPTY SELLA SYNDROME
     Dosage: UNK
  5. TUMS [Suspect]
     Active Substance: CALCIUM CARBONATE
     Indication: GASTROOESOPHAGEAL REFLUX DISEASE
     Dosage: 2000 MG, BID

REACTIONS (17)
  - Feeling abnormal [Unknown]
  - Gastrooesophageal reflux disease [Recovered/Resolved]
  - Mental impairment [Recovered/Resolved]
  - Condition aggravated [Recovered/Resolved]
  - Hypercalcaemia [Recovered/Resolved]
  - Hypomagnesaemia [Unknown]
  - Abdominal pain [Recovered/Resolved]
  - Constipation [Unknown]
  - Abdominal tenderness [Unknown]
  - Acute kidney injury [Recovered/Resolved]
  - Blood parathyroid hormone decreased [Unknown]
  - Milk-alkali syndrome [Unknown]
  - Mental status changes [Recovered/Resolved]
  - Metabolic alkalosis [Unknown]
  - Blood 1,25-dihydroxycholecalciferol decreased [Unknown]
  - Spinal compression fracture [Unknown]
  - Osteoporosis [Unknown]
